FAERS Safety Report 24554539 (Version 2)
Quarter: 2024Q4

REPORT INFORMATION
  Report Type: Spontaneous
  Country: US (occurrence: US)
  Receive Date: 20241028
  Receipt Date: 20241112
  Transmission Date: 20250114
  Serious: Yes (Life-Threatening, Hospitalization, Other)
  Sender: STRIDES
  Company Number: None

PATIENT
  Age: 45 Year
  Sex: Male

DRUGS (13)
  1. PREGABALIN [Interacting]
     Active Substance: PREGABALIN
     Indication: Drug use disorder
     Dosage: 200 MG THREE TIMES A DAY FOR SEVERAL WEEKS
     Route: 065
  2. PREGABALIN [Interacting]
     Active Substance: PREGABALIN
     Indication: Antidepressant therapy
  3. AMITRIPTYLINE [Interacting]
     Active Substance: AMITRIPTYLINE
     Indication: Drug use disorder
     Dosage: 75 MILLIGRAM, QD
     Route: 065
  4. AMITRIPTYLINE [Interacting]
     Active Substance: AMITRIPTYLINE
     Indication: Antidepressant therapy
  5. FENTANYL [Interacting]
     Active Substance: FENTANYL
     Indication: Sedation
     Dosage: 2 MCG/KG,DRIP
     Route: 042
  6. FENTANYL [Interacting]
     Active Substance: FENTANYL
     Indication: Analgesic therapy
     Dosage: DOSES ADJUSTED TO MAINTAIN RICHMOND AGITATION-SEDATION SCALE (RASS) AT ?4, RANGING FROM 0.7 TO 1 MCG
     Route: 065
  7. FENTANYL [Interacting]
     Active Substance: FENTANYL
     Dosage: DOSES ADJUSTED TO MAINTAIN RICHMOND AGITATION-SEDATION SCALE (RASS) AT ?4, RANGING FROM 0.7 TO 1 MCG
     Route: 065
  8. SUBOXONE [Interacting]
     Active Substance: BUPRENORPHINE HYDROCHLORIDE\NALOXONE HYDROCHLORIDE
     Indication: Drug use disorder
     Dosage: 16 MG/4 MG DAILY, QD
     Route: 065
  9. PROPOFOL [Concomitant]
     Active Substance: PROPOFOL
     Indication: Sedation
     Dosage: DOSE OF 3 MG/KG
     Route: 065
  10. PROPOFOL [Concomitant]
     Active Substance: PROPOFOL
     Dosage: DOSES ADJUSTED TO MAINTAIN RICHMOND AGITATION-SEDATION SCALE (RASS) AT ?4, RANGING FROM 1 TO 3 MG/KG
     Route: 065
  11. PROPOFOL [Concomitant]
     Active Substance: PROPOFOL
     Dosage: DOSES ADJUSTED TO MAINTAIN RICHMOND AGITATION-SEDATION SCALE (RASS) AT ?4, RANGING FROM 1 TO 3 MG/KG
     Route: 065
  12. CEFTRIAXONE [Concomitant]
     Active Substance: CEFTRIAXONE
     Indication: Product used for unknown indication
     Dosage: 1 GRAM
     Route: 042
  13. AZITHROMYCIN [Concomitant]
     Active Substance: AZITHROMYCIN
     Indication: Product used for unknown indication
     Dosage: 500 GRAM
     Route: 048

REACTIONS (3)
  - Serotonin syndrome [Recovered/Resolved]
  - Mental status changes [Recovering/Resolving]
  - Drug interaction [Unknown]
